FAERS Safety Report 9580154 (Version 1)
Quarter: 2013Q4

REPORT INFORMATION
  Report Type: Spontaneous
  Country: US (occurrence: US)
  Receive Date: 20131002
  Receipt Date: 20131002
  Transmission Date: 20140711
  Serious: Yes (Life-Threatening, Hospitalization, Other)
  Sender: FDA-Public Use
  Company Number: CHPA2013US015015

PATIENT
  Age: 32 Year
  Sex: Female

DRUGS (2)
  1. IBUPROFEN [Suspect]
     Indication: HEADACHE
     Dosage: UNK UNK, PRN
     Route: 048
  2. TYLENOL [Suspect]
     Indication: HEADACHE
     Dosage: UNK,UNK
     Dates: end: 2010

REACTIONS (15)
  - Apparent life threatening event [Unknown]
  - Diabetes mellitus [Unknown]
  - Pancreatitis [Recovered/Resolved]
  - Liver disorder [Unknown]
  - Amnesia [Unknown]
  - Gestational diabetes [Unknown]
  - Fibromyalgia [Unknown]
  - Blood pressure fluctuation [Unknown]
  - Drug withdrawal syndrome [Unknown]
  - Migraine [Unknown]
  - Crying [Unknown]
  - Condition aggravated [Recovered/Resolved]
  - Headache [Unknown]
  - Disease recurrence [Unknown]
  - Maternal exposure during pregnancy [Unknown]
